FAERS Safety Report 6379749-X (Version None)
Quarter: 2009Q3

REPORT INFORMATION
  Report Type: 
  Country: None (occurrence: None)
  Receive Date: 20090924
  Receipt Date: 20090924
  Transmission Date: 20100115
  Serious: Yes (Life-Threatening, Hospitalization)
  Sender: FDA-Public Use
  Company Number: None

PATIENT
  Sex: Male
  Weight: 70.5 kg

DRUGS (1)
  1. ENBREL [Suspect]
     Indication: PSORIASIS
     Dosage: INJECTION 1 OR 2 PER WEEK 3 TO 4 YEARS

REACTIONS (6)
  - AORTIC VALVE CALCIFICATION [None]
  - CARDIAC FAILURE CONGESTIVE [None]
  - CLOSTRIDIAL INFECTION [None]
  - COMA [None]
  - PERONEAL NERVE PALSY [None]
  - SEPTIC SHOCK [None]
